FAERS Safety Report 4305062-8 (Version None)
Quarter: 2004Q1

REPORT INFORMATION
  Report Type: 
  Country: None (occurrence: None)
  Receive Date: 20040224
  Receipt Date: 20040212
  Transmission Date: 20041129
  Serious: Yes (Other)
  Sender: FDA-Public Use
  Company Number: 200400950

PATIENT

DRUGS (1)
  1. BOTOX [Suspect]
     Indication: MUSCLE SPASTICITY

REACTIONS (1)
  - CONVULSION [None]
